FAERS Safety Report 24809754 (Version 1)
Quarter: 2025Q1

REPORT INFORMATION
  Report Type: Spontaneous
  Country: TN (occurrence: TN)
  Receive Date: 20250106
  Receipt Date: 20250106
  Transmission Date: 20250408
  Serious: Yes (Other)
  Sender: AMNEAL
  Company Number: TN-AMNEAL PHARMACEUTICALS-2024-AMRX-04742

PATIENT

DRUGS (1)
  1. OXYBUTYNIN CHLORIDE [Suspect]
     Active Substance: OXYBUTYNIN CHLORIDE
     Indication: Product used for unknown indication
     Route: 065

REACTIONS (1)
  - Blindness [Unknown]
